FAERS Safety Report 6193743-3 (Version None)
Quarter: 2009Q2

REPORT INFORMATION
  Report Type: 
  Country: None (occurrence: None)
  Receive Date: 20090518
  Receipt Date: 20090507
  Transmission Date: 20091009
  Serious: Yes (Hospitalization)
  Sender: FDA-Public Use
  Company Number: DE-PFIZER INC-2008097551

PATIENT

DRUGS (3)
  1. LYRICA [Suspect]
     Indication: SPINAL CORD DISORDER
     Route: 048
     Dates: start: 20041001
  2. AMITRIPTLINE HYDROCHLORIDE TAB [Concomitant]
     Route: 048
     Dates: start: 20040101
  3. DURAGESIC-100 [Concomitant]
     Route: 062
     Dates: start: 20040101

REACTIONS (3)
  - TACHYCARDIA [None]
  - TREMOR [None]
  - WITHDRAWAL SYNDROME [None]
